FAERS Safety Report 19273195 (Version 2)
Quarter: 2021Q2

REPORT INFORMATION
  Report Type: Spontaneous
  Country: AU (occurrence: AU)
  Receive Date: 20210518
  Receipt Date: 20210528
  Transmission Date: 20210717
  Serious: Yes (Other)
  Sender: FDA-Public Use
  Company Number: AU-BAXTER-2021BAX011011

PATIENT
  Sex: Female

DRUGS (4)
  1. DOCETAXEL. [Suspect]
     Active Substance: DOCETAXEL
     Indication: CHEMOTHERAPY
     Route: 065
     Dates: start: 20210506, end: 20210506
  2. DOCETAXEL. [Suspect]
     Active Substance: DOCETAXEL
     Dosage: RECOMMENCED WITH HALF THE PREVIOUS INFUSION RATE
     Route: 065
     Dates: start: 20210506
  3. SODIUM CHLORIDE (VIAFLO) 500ML [Suspect]
     Active Substance: SODIUM CHLORIDE
     Indication: MEDICATION DILUTION
     Route: 065
     Dates: start: 20210506, end: 20210506
  4. SODIUM CHLORIDE (VIAFLO) 500ML [Suspect]
     Active Substance: SODIUM CHLORIDE
     Dosage: RECOMMENCED WITH HALF THE PREVIOUS INFUSION RATE
     Route: 065
     Dates: start: 20210506

REACTIONS (4)
  - Dizziness [Recovered/Resolved]
  - Erythema [Recovered/Resolved]
  - Nausea [Recovered/Resolved]
  - Feeling hot [Recovered/Resolved]

NARRATIVE: CASE EVENT DATE: 20210506
